FAERS Safety Report 10467428 (Version 1)
Quarter: 2014Q3

REPORT INFORMATION
  Report Type: Spontaneous
  Country: FR (occurrence: FR)
  Receive Date: 20140922
  Receipt Date: 20140922
  Transmission Date: 20150326
  Serious: Yes (Life-Threatening, Hospitalization)
  Sender: FDA-Public Use
  Company Number: FR-BRISTOL-MYERS SQUIBB COMPANY-21393640

PATIENT
  Age: 61 Year
  Sex: Female

DRUGS (5)
  1. DOLIPRANE [Concomitant]
     Active Substance: ACETAMINOPHEN
  2. CORTANCYL [Concomitant]
     Active Substance: PREDNISONE
  3. OGASTORO [Concomitant]
     Active Substance: LANSOPRAZOLE
  4. ORENCIA [Suspect]
     Active Substance: ABATACEPT
     Indication: RHEUMATOID ARTHRITIS
     Route: 042
     Dates: start: 20120307, end: 20131211
  5. SPECIAFOLDINE [Concomitant]
     Active Substance: FOLIC ACID

REACTIONS (2)
  - Pancreatitis acute [Recovered/Resolved]
  - Sarcoidosis [Not Recovered/Not Resolved]

NARRATIVE: CASE EVENT DATE: 20131230
